FAERS Safety Report 5581478-7 (Version None)
Quarter: 2008Q1

REPORT INFORMATION
  Report Type: 
  Country: None (occurrence: None)
  Receive Date: 20080103
  Receipt Date: 20080103
  Transmission Date: 20080703
  Serious: Yes (Life-Threatening, Other)
  Sender: FDA-Public Use
  Company Number: None

PATIENT
  Age: 29 Year
  Sex: Male
  Weight: 63.5036 kg

DRUGS (3)
  1. CHANTIX [Suspect]
     Indication: SMOKING CESSATION THERAPY
     Dosage: 1 OR 2 TABS  X2  PO
     Route: 048
     Dates: start: 20070114, end: 20070131
  2. ZITHROMAX [Concomitant]
  3. OMNIHIST [Concomitant]

REACTIONS (1)
  - MORBID THOUGHTS [None]
